FAERS Safety Report 10673511 (Version 2)
Quarter: 2014Q4

REPORT INFORMATION
  Report Type: Spontaneous
  Country: PL (occurrence: PL)
  Receive Date: 20141224
  Receipt Date: 20141230
  Transmission Date: 20150529
  Serious: Yes (Disabling, Other)
  Sender: FDA-Public Use
  Company Number: PL-RANBAXY-2014RR-90671

PATIENT
  Sex: Female

DRUGS (2)
  1. KLABAX 500 MG TABLETS [Suspect]
     Active Substance: CLARITHROMYCIN
     Indication: PRODUCT USED FOR UNKNOWN INDICATION
     Dosage: 4 X 500MG
     Route: 048
  2. ERDOMED [Concomitant]
     Active Substance: ERDOSTEINE
     Indication: PRODUCT USED FOR UNKNOWN INDICATION
     Dosage: UNK
     Route: 065

REACTIONS (12)
  - Headache [Unknown]
  - Hypotension [Unknown]
  - Hepatic pain [Unknown]
  - Rash [Unknown]
  - Dizziness [Unknown]
  - Renal pain [Unknown]
  - Asthenia [Unknown]
  - Dysgeusia [Unknown]
  - Nausea [Unknown]
  - Vomiting [Unknown]
  - Dyspnoea [Unknown]
  - Palpitations [Unknown]
